FAERS Safety Report 7384657-1 (Version None)
Quarter: 2011Q1

REPORT INFORMATION
  Report Type: 
  Country: None (occurrence: None)
  Receive Date: 20110330
  Receipt Date: 20091113
  Transmission Date: 20110831
  Serious: Yes (Hospitalization, Other)
  Sender: FDA-Public Use
  Company Number: US-BAYER-200939200NA

PATIENT
  Sex: Female
  Weight: 90.703 kg

DRUGS (13)
  1. ACETYLSALICYLIC ACID SRT [Concomitant]
     Dosage: 325 MG, UNK
     Route: 048
     Dates: start: 20050425
  2. HEPARIN SODIUM [Concomitant]
     Dosage: 1000 UNIT IN 500 ML OF SODIUM CHLORIDE
     Dates: start: 20050519, end: 20050519
  3. TRASYLOL [Suspect]
     Indication: AORTIC VALVE REPLACEMENT
     Dosage: 200 ML, UNK
     Route: 042
     Dates: start: 20050519, end: 20050519
  4. LIDOCAINE [Concomitant]
     Dosage: 2 ML, UNK
     Dates: start: 20050519, end: 20050519
  5. NOVOLIN R [Concomitant]
     Dosage: 20 U, UNK
     Route: 042
     Dates: start: 20050519
  6. ENALAPRIL MALEATE [Concomitant]
     Indication: HYPERTENSION
     Dosage: 20 MG, UNK
     Route: 048
     Dates: start: 19990101
  7. PROTAMINE SULFATE [Concomitant]
     Dosage: 450 MG, UNK
     Route: 042
     Dates: start: 20050519, end: 20050519
  8. FUROSEMIDE [Concomitant]
     Indication: FLUID RETENTION
     Dosage: 40 MG, UNK
     Route: 048
     Dates: start: 20000101
  9. CARDIOPLEGIA [Concomitant]
     Dosage: UNK
     Dates: start: 20050519, end: 20050519
  10. LEVOPHED [Concomitant]
     Dosage: 8 MG, UNK
     Route: 042
     Dates: start: 20050519, end: 20050526
  11. HEPARIN SODIUM [Concomitant]
     Dosage: 30000 U, UNK
     Route: 042
     Dates: start: 20050519, end: 20050519
  12. VANCOMYCIN [Concomitant]
     Dosage: 1 G, UNK
     Route: 042
     Dates: start: 20050519, end: 20050522
  13. DOBUTAMINE [Concomitant]
     Dosage: 500 MG, UNK
     Route: 042
     Dates: start: 20050519, end: 20050519

REACTIONS (10)
  - ANHEDONIA [None]
  - ANXIETY [None]
  - RENAL INJURY [None]
  - PAIN [None]
  - RENAL FAILURE [None]
  - INJURY [None]
  - STRESS [None]
  - FEAR [None]
  - UNEVALUABLE EVENT [None]
  - EMOTIONAL DISTRESS [None]
